FAERS Safety Report 12823365 (Version 1)
Quarter: 2016Q4

REPORT INFORMATION
  Report Type: Spontaneous
  Country: IT (occurrence: IT)
  Receive Date: 20161006
  Receipt Date: 20161006
  Transmission Date: 20170207
  Serious: Yes (Life-Threatening, Other)
  Sender: FDA-Public Use
  Company Number: IT-MYLANLABS-2016M1042227

PATIENT

DRUGS (4)
  1. BUPIVACAINE. [Suspect]
     Active Substance: BUPIVACAINE
     Indication: SPINAL ANAESTHESIA
     Dosage: 10 MG, UNK
     Route: 037
  2. HYDROXYETHYLSTARCH [Concomitant]
     Active Substance: HETASTARCH
     Indication: PROPHYLAXIS
     Dosage: 500 ML, UNK
  3. FENTANYL. [Suspect]
     Active Substance: FENTANYL
     Indication: SPINAL ANAESTHESIA
     Dosage: 20 ?G, PRN
     Route: 037
  4. EPHEDRINE. [Concomitant]
     Active Substance: EPHEDRINE
     Indication: PROPHYLAXIS
     Dosage: 10 MG, UNK

REACTIONS (5)
  - Maternal exposure during delivery [Recovered/Resolved]
  - Presyncope [Recovering/Resolving]
  - Bradycardia [Recovering/Resolving]
  - Cardiac arrest [Recovering/Resolving]
  - Normal newborn [Recovered/Resolved]
